FAERS Safety Report 12165536 (Version 1)
Quarter: 2016Q1

REPORT INFORMATION
  Report Type: Report from Study
  Country: FR (occurrence: FR)
  Receive Date: 20160309
  Receipt Date: 20160309
  Transmission Date: 20160526
  Serious: Yes (Death, Life-Threatening)
  Sender: FDA-Public Use
  Company Number: FR-ASTRAZENECA-2016SE10736

PATIENT
  Age: 28121 Day
  Sex: Female
  Weight: 61 kg

DRUGS (8)
  1. LEVOTHYROX [Concomitant]
     Active Substance: LEVOTHYROXINE
     Indication: HYPOTHYROIDISM
  2. DOLIPRANE [Concomitant]
     Active Substance: ACETAMINOPHEN
     Dosage: AS REQUIRED
  3. CACIT [Concomitant]
     Active Substance: CALCIUM\VITAMIN D
     Dates: start: 201510
  4. KALEORID [Concomitant]
     Active Substance: POTASSIUM CHLORIDE
     Dosage: 1000 PER DAY
  5. TAGRISSO [Suspect]
     Active Substance: OSIMERTINIB
     Indication: NON-SMALL CELL LUNG CANCER
     Route: 048
     Dates: start: 20151113, end: 20160114
  6. LASILIX [Concomitant]
     Active Substance: FUROSEMIDE
     Indication: HYPERTENSION
     Dosage: 40 MG IN THE MORNING AND 20 MG AT MIDDAY
  7. XGEVA [Concomitant]
     Active Substance: DENOSUMAB
     Indication: METASTASES TO BONE
     Dates: start: 201510
  8. TAGRISSO [Suspect]
     Active Substance: OSIMERTINIB
     Indication: EGFR GENE MUTATION
     Route: 048
     Dates: start: 20151113, end: 20160114

REACTIONS (4)
  - Cardiac failure [Fatal]
  - Renal failure [Fatal]
  - Hypocalcaemia [Fatal]
  - Cardiac tamponade [Recovered/Resolved]

NARRATIVE: CASE EVENT DATE: 20160113
